FAERS Safety Report 8788614 (Version 2)
Quarter: 2013Q4

REPORT INFORMATION
  Report Type: Spontaneous
  Country: US (occurrence: US)
  Receive Date: 20120917
  Receipt Date: 20131101
  Transmission Date: 20140711
  Serious: No
  Sender: FDA-Public Use
  Company Number: US-009507513-1208USA008320

PATIENT
  Sex: Female

DRUGS (1)
  1. NUVARING [Suspect]
     Indication: CONTRACEPTION
     Dosage: ONE NUVARING INSERTED VAGINALLY CONTINUOUSLY FOR THREE WEEKS AND THEN REMOVED FOR A ONE WEEK BREAK
     Route: 067
     Dates: start: 2011, end: 20120627

REACTIONS (1)
  - Breast enlargement [Not Recovered/Not Resolved]
